FAERS Safety Report 5027004-2 (Version None)
Quarter: 2006Q2

REPORT INFORMATION
  Report Type: 
  Country: None (occurrence: None)
  Receive Date: 20060615
  Receipt Date: 20060202
  Transmission Date: 20061013
  Serious: No
  Sender: FDA-Public Use
  Company Number: PHEH2006US01647

PATIENT
  Age: 70 Year
  Sex: Male

DRUGS (2)
  1. ZOMETA [Suspect]
     Indication: METASTASES TO BONE
     Dosage: 4 MG Q 4WKS
     Dates: start: 20051006, end: 20060105
  2. AREDIA [Concomitant]
     Indication: METASTASES TO BONE
     Dosage: 90 MG, Q 4WKS
     Dates: start: 20060202

REACTIONS (1)
  - PAIN IN JAW [None]
